FAERS Safety Report 16000439 (Version 5)
Quarter: 2019Q2

REPORT INFORMATION
  Report Type: Report from Study
  Country: US (occurrence: US)
  Receive Date: 20190225
  Receipt Date: 20190606
  Transmission Date: 20190711
  Serious: Yes (Life-Threatening, Hospitalization, Other)
  Sender: FDA-Public Use
  Company Number: US-TESARO-2019-TSO00680-US

PATIENT
  Age: 76 Year
  Sex: Female

DRUGS (2)
  1. ZEJULA [Suspect]
     Active Substance: NIRAPARIB
     Dosage: 100 MG, QD AT BEDTIME WITHOUT FOOD
     Route: 048
     Dates: start: 20190301
  2. ZEJULA [Suspect]
     Active Substance: NIRAPARIB
     Indication: OVARIAN CANCER
     Dosage: 200 MG, AT BEDTIME WITHOUT FOOD
     Dates: start: 20190204, end: 20190214

REACTIONS (11)
  - Sepsis [Recovered/Resolved]
  - Neuropathy peripheral [Not Recovered/Not Resolved]
  - Carbohydrate antigen 125 increased [Not Recovered/Not Resolved]
  - Asthenia [Recovered/Resolved]
  - Asthenia [Recovering/Resolving]
  - Dyspnoea [Recovered/Resolved]
  - Urinary tract infection [Recovered/Resolved]
  - Nausea [Recovering/Resolving]
  - Platelet count decreased [Recovered/Resolved]
  - Haemoglobin decreased [Unknown]
  - Contusion [Unknown]

NARRATIVE: CASE EVENT DATE: 201902
